FAERS Safety Report 6109378-4 (Version None)
Quarter: 2009Q1

REPORT INFORMATION
  Report Type: 
  Country: None (occurrence: None)
  Receive Date: 20090310
  Receipt Date: 20090303
  Transmission Date: 20090719
  Serious: Yes (Other)
  Sender: FDA-Public Use
  Company Number: A0767447A

PATIENT
  Age: 38 Year
  Sex: Female

DRUGS (10)
  1. FLOVENT [Suspect]
     Indication: ASTHMA
     Dosage: 2PUFF TWICE PER DAY
     Route: 055
     Dates: start: 20060101, end: 20081101
  2. FLOVENT [Suspect]
     Dosage: 2PUFF TWICE PER DAY
     Route: 055
     Dates: start: 20081101
  3. INTAL [Concomitant]
     Indication: ASTHMA
     Dosage: 2PUFF TWICE PER DAY
     Route: 055
     Dates: start: 20080801
  4. ALBUTEROL [Concomitant]
     Indication: ASTHMA
     Dosage: 2PUFF AS REQUIRED
     Dates: start: 20061101
  5. SINGULAIR [Concomitant]
     Dates: start: 20070501
  6. CLARITIN [Concomitant]
     Dates: start: 20040101
  7. SYNTHROID [Concomitant]
     Dosage: 50MCG IN THE MORNING
     Dates: start: 20050101
  8. VITAMIN D [Concomitant]
     Dosage: 50000IU MONTHLY
  9. BIRTH CONTROL [Concomitant]
     Dates: start: 19960101
  10. RESTASIS [Concomitant]
     Dosage: 2G AT NIGHT
     Dates: start: 20040101

REACTIONS (5)
  - ASTHMA [None]
  - INHALATION THERAPY [None]
  - OVERDOSE [None]
  - PEAK EXPIRATORY FLOW RATE DECREASED [None]
  - PRODUCT QUALITY ISSUE [None]
